FAERS Safety Report 15290625 (Version 1)
Quarter: 2018Q4

REPORT INFORMATION
  Report Type: Spontaneous
  Country: ES (occurrence: ES)
  Receive Date: 20180817
  Receipt Date: 20180817
  Transmission Date: 20190204
  Serious: Yes (Disabling, Other)
  Sender: FDA-Public Use
  Company Number: ES-TEVA-2018-ES-942677

PATIENT
  Age: 83 Year
  Sex: Female

DRUGS (5)
  1. ALOPURINOL 300 [Suspect]
     Active Substance: ALLOPURINOL
     Indication: BLOOD URIC ACID INCREASED
     Dosage: 300 MILLIGRAM DAILY;
     Route: 048
     Dates: start: 20180620
  2. ORFIDAL [Concomitant]
     Active Substance: LORAZEPAM
     Dosage: OCASIONAL
     Route: 048
  3. IMATINIB (2833A) [Suspect]
     Active Substance: IMATINIB MESYLATE
     Indication: CHRONIC MYELOID LEUKAEMIA
     Dosage: 400 MILLIGRAM DAILY; 1 DAILY TABLET, IMITANIB 400 (0-1-0), THE 26/06/2018 IS SUSPENDED, REINTRODUCED
     Route: 048
     Dates: start: 20180620
  4. SIMVASTATINA 20 MG 28 COMPRIMIDOS [Concomitant]
     Active Substance: SIMVASTATIN
  5. EXFORGE HCT 10 MG/160 MG/25 MG COMPRIMIDOS RECUBIERTOS CON PELICULA [Concomitant]

REACTIONS (8)
  - Nausea [Recovering/Resolving]
  - Tremor [Recovering/Resolving]
  - Malaise [Recovering/Resolving]
  - Oesophageal pain [Recovering/Resolving]
  - Diarrhoea [Recovering/Resolving]
  - Palpitations [Recovered/Resolved]
  - Gait disturbance [Recovering/Resolving]
  - Oral pain [Recovering/Resolving]

NARRATIVE: CASE EVENT DATE: 201806
